FAERS Safety Report 8772617 (Version 2)
Quarter: 2012Q4

REPORT INFORMATION
  Report Type: Report from Study
  Country: US (occurrence: US)
  Receive Date: 20120905
  Receipt Date: 20120917
  Transmission Date: 20130627
  Serious: Yes (Hospitalization)
  Sender: FDA-Public Use
  Company Number: US-AMGEN-USANI2012052457

PATIENT
  Age: 43 Year
  Sex: Male

DRUGS (6)
  1. ETANERCEPT [Suspect]
     Indication: PSORIASIS
     Dosage: 50 mg, qwk
     Route: 058
     Dates: start: 20050929
  2. CLARITIN-D [Concomitant]
  3. RHINOCORT [Concomitant]
  4. ZITHROMAX [Concomitant]
     Dosage: UNK
     Dates: start: 20090501, end: 20090512
  5. ROCEPHIN [Concomitant]
     Dosage: 1 g, UNK
     Dates: start: 20090521
  6. SUDAFED [Concomitant]
     Dosage: 30 mg, prn
     Dates: start: 20090501, end: 20090524

REACTIONS (1)
  - Pleural effusion [Recovered/Resolved]
